FAERS Safety Report 16775826 (Version 1)
Quarter: 2019Q3

REPORT INFORMATION
  Report Type: Spontaneous
  Country: US (occurrence: US)
  Receive Date: 20190905
  Receipt Date: 20190905
  Transmission Date: 20191005
  Serious: No
  Sender: FDA-Public Use
  Company Number: US-PFIZER INC-2019372663

PATIENT
  Age: 59 Year
  Sex: Female
  Weight: 106.5 kg

DRUGS (1)
  1. NORVASC [Suspect]
     Active Substance: AMLODIPINE BESYLATE
     Dosage: 2 DF, 2X/DAY

REACTIONS (3)
  - Off label use [Unknown]
  - Product use issue [Unknown]
  - Joint swelling [Unknown]
